FAERS Safety Report 10197006 (Version 1)
Quarter: 2014Q2

REPORT INFORMATION
  Report Type: Spontaneous
  Country: US (occurrence: None)
  Receive Date: 20140523
  Receipt Date: 20140523
  Transmission Date: 20141212
  Serious: No
  Sender: FDA-Public Use
  Company Number: None

PATIENT
  Age: 30 Year
  Sex: Male
  Weight: 71.2 kg

DRUGS (2)
  1. PRAZOSIN [Suspect]
     Indication: POST-TRAUMATIC STRESS DISORDER
     Route: 048
     Dates: start: 20140228, end: 20140319
  2. PRAZOSIN [Suspect]
     Indication: NIGHTMARE
     Route: 048
     Dates: start: 20140228, end: 20140319

REACTIONS (4)
  - Anxiety [None]
  - Headache [None]
  - Tachycardia [None]
  - Agitation [None]
